FAERS Safety Report 9529947 (Version 3)
Quarter: 2013Q4

REPORT INFORMATION
  Report Type: Report from Study
  Country: US (occurrence: US)
  Receive Date: 20130917
  Receipt Date: 20131107
  Transmission Date: 20140711
  Serious: Yes (Other)
  Sender: FDA-Public Use
  Company Number: US-TEVA-432005USA

PATIENT
  Age: 27 Year
  Sex: Female

DRUGS (1)
  1. CLARAVIS [Suspect]
     Dosage: 120 MILLIGRAM DAILY;
     Dates: start: 20130729, end: 20130827

REACTIONS (1)
  - Unintended pregnancy [Recovered/Resolved]
